FAERS Safety Report 16434202 (Version 2)
Quarter: 2019Q3

REPORT INFORMATION
  Report Type: Report from Study
  Country: US (occurrence: US)
  Receive Date: 20190614
  Receipt Date: 20190729
  Transmission Date: 20191004
  Serious: Yes (Hospitalization, Other)
  Sender: FDA-Public Use
  Company Number: US-ELI_LILLY_AND_COMPANY-US201906003374

PATIENT
  Sex: Male

DRUGS (2)
  1. TERIPARATIDE [Suspect]
     Active Substance: TERIPARATIDE
     Indication: OSTEOPENIA
     Dosage: UNK, UNKNOWN
     Route: 065
     Dates: start: 2011
  2. TERIPARATIDE [Suspect]
     Active Substance: TERIPARATIDE
     Indication: SPINAL OPERATION

REACTIONS (5)
  - Nephrolithiasis [Recovered/Resolved]
  - Meningitis [Recovered/Resolved]
  - Spinal compression fracture [Unknown]
  - Off label use [Unknown]
  - Intervertebral disc compression [Not Recovered/Not Resolved]

NARRATIVE: CASE EVENT DATE: 2012
